FAERS Safety Report 7383230-9 (Version None)
Quarter: 2011Q1

REPORT INFORMATION
  Report Type: 
  Country: None (occurrence: None)
  Receive Date: 20110330
  Receipt Date: 20110322
  Transmission Date: 20110831
  Serious: Yes (Life-Threatening, Hospitalization, Other)
  Sender: FDA-Public Use
  Company Number: PHHO2011US05317

PATIENT
  Sex: Male

DRUGS (11)
  1. DIURETICS [Concomitant]
  2. SAXAGLIPTIN [Concomitant]
  3. ALDOSTERONE [Concomitant]
  4. ANTICOAGULANTS [Concomitant]
  5. BETA BLOCKING AGENTS [Concomitant]
  6. METOPROLOL TARTRATE [Suspect]
  7. INSULIN GLARGINE [Concomitant]
  8. VERAPAMIL [Suspect]
  9. DIOVAN [Suspect]
  10. FUROSEMIDE [Suspect]
  11. ANGIOTENSIN CONVERTING ENZYME BLOCKERS [Concomitant]

REACTIONS (5)
  - ASTHENIA [None]
  - HYPERKALAEMIA [None]
  - RENAL IMPAIRMENT [None]
  - HYPOXIA [None]
  - BRADYCARDIA [None]
